FAERS Safety Report 21917377 (Version 1)
Quarter: 2023Q1

REPORT INFORMATION
  Report Type: Report from Study
  Country: NL (occurrence: NL)
  Receive Date: 20230126
  Receipt Date: 20230126
  Transmission Date: 20230418
  Serious: Yes (Other)
  Sender: FDA-Public Use
  Company Number: NL-GILEAD-2022-0590602

PATIENT
  Age: 60 Year
  Sex: Female

DRUGS (3)
  1. SACITUZUMAB GOVITECAN-HZIY [Suspect]
     Active Substance: SACITUZUMAB GOVITECAN-HZIY
     Indication: Triple negative breast cancer
     Dosage: 10 MG/KG
     Route: 042
     Dates: start: 20220713, end: 20220823
  2. SACITUZUMAB GOVITECAN-HZIY [Suspect]
     Active Substance: SACITUZUMAB GOVITECAN-HZIY
     Dosage: 7.5 MG/KG
     Route: 042
     Dates: start: 20220824, end: 20230118
  3. SACITUZUMAB GOVITECAN-HZIY [Suspect]
     Active Substance: SACITUZUMAB GOVITECAN-HZIY
     Dosage: 7.5 MG/KG C8
     Route: 042

REACTIONS (13)
  - Disease progression [Unknown]
  - Neutropenia [Unknown]
  - Leukopenia [Unknown]
  - Restless legs syndrome [Unknown]
  - Alanine aminotransferase increased [Unknown]
  - Flushing [Unknown]
  - Haemoglobin decreased [Unknown]
  - Nausea [Unknown]
  - Neutrophil count decreased [Unknown]
  - Alopecia [Not Recovered/Not Resolved]
  - Cough [Unknown]
  - Blood glucose abnormal [Unknown]
  - Wrong schedule [Unknown]
